FAERS Safety Report 10208368 (Version 2)
Quarter: 2014Q2

REPORT INFORMATION
  Report Type: Report from Study
  Country: US (occurrence: US)
  Receive Date: 20140530
  Receipt Date: 20140530
  Transmission Date: 20141212
  Serious: Yes (Hospitalization, Other)
  Sender: FDA-Public Use
  Company Number: US-JNJFOC-20140113890

PATIENT
  Age: 76 Year
  Sex: Female
  Weight: 63.5 kg

DRUGS (6)
  1. REMICADE [Suspect]
     Indication: ARTHRITIS
     Route: 042
     Dates: start: 2013
  2. REMICADE [Suspect]
     Indication: ARTHRITIS
     Route: 042
  3. REMICADE [Suspect]
     Indication: ANKYLOSING SPONDYLITIS
     Route: 042
     Dates: start: 2013
  4. REMICADE [Suspect]
     Indication: ANKYLOSING SPONDYLITIS
     Route: 042
  5. REMICADE [Suspect]
     Indication: RHEUMATOID ARTHRITIS
     Route: 042
  6. REMICADE [Suspect]
     Indication: RHEUMATOID ARTHRITIS
     Route: 042
     Dates: start: 2013

REACTIONS (8)
  - Clostridium difficile infection [Unknown]
  - Pneumonia [Unknown]
  - Fall [Recovered/Resolved]
  - Head injury [Recovered/Resolved]
  - Laceration [Unknown]
  - Diarrhoea [Unknown]
  - Asthenia [Recovering/Resolving]
  - Drug dose omission [Not Recovered/Not Resolved]
